FAERS Safety Report 16656498 (Version 1)
Quarter: 2019Q3

REPORT INFORMATION
  Report Type: Spontaneous
  Country: US (occurrence: US)
  Receive Date: 20190801
  Receipt Date: 20190801
  Transmission Date: 20191004
  Serious: Yes (Other)
  Sender: FDA-Public Use
  Company Number: US-PFIZER INC-2019324874

PATIENT
  Age: 85 Year
  Sex: Male

DRUGS (1)
  1. XALKORI [Suspect]
     Active Substance: CRIZOTINIB
     Indication: GENE MUTATION
     Dosage: 250 (UNIT NOT PROVIDED)

REACTIONS (5)
  - Visual impairment [Unknown]
  - Bradycardia [Unknown]
  - Renal failure [Unknown]
  - Product use in unapproved indication [Unknown]
  - Off label use [Unknown]
